FAERS Safety Report 14211908 (Version 1)
Quarter: 2017Q4

REPORT INFORMATION
  Report Type: Other
  Country: US (occurrence: US)
  Receive Date: 20171121
  Receipt Date: 20171121
  Transmission Date: 20180321
  Serious: No
  Sender: FDA-Public Use
  Company Number: US-LEADIANT BIOSCIENCES INC-2016STPI000823

PATIENT

DRUGS (1)
  1. CYSTARAN [Suspect]
     Active Substance: CYSTEAMINE HYDROCHLORIDE
     Indication: CORNEAL DEPOSITS
     Dosage: UNK UNK, QH WHILE AWAKE
     Route: 047
     Dates: start: 20140812

REACTIONS (2)
  - Eye pruritus [Unknown]
  - Photophobia [Unknown]

NARRATIVE: CASE EVENT DATE: 20160927
